FAERS Safety Report 5891379-2 (Version None)
Quarter: 2008Q3

REPORT INFORMATION
  Report Type: 
  Country: None (occurrence: None)
  Receive Date: 20080918
  Receipt Date: 20080918
  Transmission Date: 20090109
  Serious: Yes (Other)
  Sender: FDA-Public Use
  Company Number: None

PATIENT
  Sex: Female
  Weight: 102.0593 kg

DRUGS (4)
  1. XOLAIR [Suspect]
     Indication: ASTHMA
     Dosage: 300MG Q 4 WEEKS SQ
     Route: 058
     Dates: start: 20040501, end: 20070301
  2. XOLAIR [Suspect]
     Indication: ASTHMA
     Dosage: 300MG Q 4 WEEKS SQ
     Route: 058
     Dates: start: 20080301
  3. XOLAIR [Suspect]
     Indication: ASTHMA
     Dosage: 300MG Q 4 WEEKS SQ
     Route: 058
     Dates: start: 20080401
  4. XOLAIR [Suspect]
     Indication: ASTHMA
     Dosage: 300MG Q 4 WEEKS SQ
     Route: 058
     Dates: start: 20080901

REACTIONS (5)
  - ERYTHEMA [None]
  - EYE SWELLING [None]
  - PRURITUS [None]
  - RASH MACULAR [None]
  - TREATMENT NONCOMPLIANCE [None]
